FAERS Safety Report 5692005-8 (Version None)
Quarter: 2008Q2

REPORT INFORMATION
  Report Type: 
  Country: None (occurrence: None)
  Receive Date: 20080402
  Receipt Date: 20080327
  Transmission Date: 20081010
  Serious: Yes (Death)
  Sender: FDA-Public Use
  Company Number: FR-TEVA-169380ISR

PATIENT
  Sex: Male

DRUGS (20)
  1. VINCRISTINE [Suspect]
     Indication: ACUTE LYMPHOCYTIC LEUKAEMIA
     Route: 042
     Dates: start: 20071231, end: 20080114
  2. METHOTREXATE [Suspect]
     Indication: ACUTE LYMPHOCYTIC LEUKAEMIA
     Route: 037
     Dates: start: 20080102, end: 20080114
  3. CYCLOPHOSPHAMIDE [Suspect]
     Indication: ACUTE LYMPHOCYTIC LEUKAEMIA
     Route: 042
     Dates: start: 20080101, end: 20080107
  4. IDARUBICIN HCL [Suspect]
     Indication: ACUTE LYMPHOCYTIC LEUKAEMIA
     Route: 042
     Dates: start: 20070131, end: 20080107
  5. IMATINIB MESYLATE [Suspect]
     Indication: ACUTE LYMPHOCYTIC LEUKAEMIA
     Route: 048
     Dates: start: 20071228, end: 20080120
  6. CYTARABINE [Suspect]
     Indication: ACUTE LYMPHOCYTIC LEUKAEMIA
     Route: 037
     Dates: start: 20080102, end: 20080114
  7. OMEPRAZOLE [Concomitant]
     Dates: start: 20071226, end: 20080107
  8. FUROSEMIDE [Concomitant]
     Dates: start: 20071226, end: 20080107
  9. ALPRAZOLAM [Concomitant]
     Dates: start: 20071226, end: 20080107
  10. BACTRIM [Concomitant]
     Dates: start: 20071226, end: 20080107
  11. VALACYCLOVIR [Concomitant]
     Dates: start: 20071226, end: 20080107
  12. HEPARIN [Concomitant]
     Dates: start: 20071226, end: 20080107
  13. CEFTRIAXONE [Concomitant]
     Dates: start: 20071226, end: 20080107
  14. NEUROBION [Concomitant]
     Dates: start: 20071226, end: 20080107
  15. ALLOPURINOL [Concomitant]
     Dates: start: 20071226, end: 20080107
  16. CLOMIPRAMINE HYDROCHLORIDE [Concomitant]
     Dates: start: 20071230, end: 20080106
  17. VENLAFAXINE HCL [Concomitant]
     Dates: start: 20080101
  18. GENTAMICIN [Concomitant]
  19. VANCOMYCIN [Concomitant]
     Route: 042
     Dates: start: 20080109
  20. ALIMEMAZINE TARTRATE [Concomitant]
     Dates: start: 20080112

REACTIONS (1)
  - ASPERGILLOSIS [None]
